FAERS Safety Report 21593444 (Version 4)
Quarter: 2025Q4

REPORT INFORMATION
  Report Type: Spontaneous
  Country: EU (occurrence: EU)
  Receive Date: 20221114
  Receipt Date: 20251004
  Transmission Date: 20260117
  Serious: Yes (Hospitalization, Other)
  Sender: AUROBINDO
  Company Number: EU-MLMSERVICE-20221104-3890126-1

PATIENT
  Age: 6 Decade
  Sex: Male

DRUGS (12)
  1. CLOZAPINE [Suspect]
     Active Substance: CLOZAPINE
     Indication: Schizophrenia
     Dosage: UNK
     Route: 065
     Dates: start: 2018
  2. CLOZAPINE [Suspect]
     Active Substance: CLOZAPINE
     Dosage: 350 MILLIGRAM, ONCE A DAY
     Route: 048
     Dates: start: 2020
  3. CLOZAPINE [Suspect]
     Active Substance: CLOZAPINE
     Dosage: 325 MILLIGRAM, ONCE A DAY
     Route: 048
     Dates: start: 2020, end: 202107
  4. QUETIAPINE [Suspect]
     Active Substance: QUETIAPINE
     Indication: Schizophrenia
     Dosage: 800 MILLIGRAM
     Route: 065
     Dates: start: 2017
  5. CLORAZEPATE DIPOTASSIUM [Concomitant]
     Active Substance: CLORAZEPATE DIPOTASSIUM
     Indication: Sleep disorder
     Dosage: UNK
     Route: 065
  6. CLORAZEPATE DIPOTASSIUM [Concomitant]
     Active Substance: CLORAZEPATE DIPOTASSIUM
     Indication: Anxiety
  7. LORMETAZEPAM [Concomitant]
     Active Substance: LORMETAZEPAM
     Indication: Anxiety
     Dosage: UNK
     Route: 065
  8. LORMETAZEPAM [Concomitant]
     Active Substance: LORMETAZEPAM
     Indication: Sleep disorder
  9. LOXAPINE [Concomitant]
     Active Substance: LOXAPINE
     Indication: Schizophrenia
     Dosage: UNK
     Route: 065
     Dates: start: 2012, end: 2018
  10. PALIPERIDONE [Concomitant]
     Active Substance: PALIPERIDONE
     Indication: Schizophrenia
     Dosage: UNK, LONG ACTING
     Route: 065
     Dates: start: 2010, end: 2018
  11. Pygeum africanum [Concomitant]
     Indication: Benign prostatic hyperplasia
     Dosage: UNK
     Route: 065
  12. VALPROIC ACID [Concomitant]
     Active Substance: VALPROIC ACID
     Indication: Schizophrenia
     Dosage: UNK,VARIABLE DOSAGE OF BETWEEN 750 MG AND 1000 MG/DAY
     Route: 065
     Dates: start: 201008

REACTIONS (3)
  - Antipsychotic drug level above therapeutic [Recovered/Resolved]
  - Left ventricular dysfunction [Recovered/Resolved]
  - Dilated cardiomyopathy [Recovered/Resolved]

NARRATIVE: CASE EVENT DATE: 20200601
